FAERS Safety Report 9825483 (Version 1)
Quarter: 2014Q1

REPORT INFORMATION
  Report Type: Spontaneous
  Country: US (occurrence: US)
  Receive Date: 20140117
  Receipt Date: 20140117
  Transmission Date: 20141002
  Serious: No
  Sender: FDA-Public Use
  Company Number: US-PFIZER INC-2014011425

PATIENT
  Age: 56 Year
  Sex: Female
  Weight: 60.77 kg

DRUGS (3)
  1. TRIMETHOPRIM [Suspect]
     Dosage: 100 MG, UNK
  2. ZETIA [Suspect]
     Dosage: UNK
  3. ACETAMINOPHEN [Suspect]
     Dosage: UNK

REACTIONS (1)
  - Drug hypersensitivity [Unknown]
